FAERS Safety Report 26161275 (Version 2)
Quarter: 2025Q4

REPORT INFORMATION
  Report Type: Spontaneous
  Country: CA (occurrence: CA)
  Receive Date: 20251216
  Receipt Date: 20251219
  Transmission Date: 20260118
  Serious: Yes (Life-Threatening, Other)
  Sender: SANOFI AVENTIS
  Company Number: CA-SA-2025SA371741

PATIENT
  Age: 4 Year
  Sex: Female
  Weight: 18 kg

DRUGS (3)
  1. ALEMTUZUMAB [Suspect]
     Active Substance: ALEMTUZUMAB
     Indication: Bone marrow conditioning regimen
     Dosage: 3 MG
     Route: 042
  2. FLUDARABINE PHOSPHATE [Suspect]
     Active Substance: FLUDARABINE PHOSPHATE
     Indication: Bone marrow conditioning regimen
     Dosage: 30 MG
     Route: 042
  3. BUSULFAN [Suspect]
     Active Substance: BUSULFAN
     Indication: Bone marrow conditioning regimen
     Dosage: 96 MG
     Route: 042

REACTIONS (13)
  - Ascites [Recovered/Resolved]
  - Mucosal inflammation [Recovered/Resolved]
  - Hepatic pain [Recovered/Resolved]
  - Periportal oedema [Recovered/Resolved]
  - Febrile neutropenia [Recovered/Resolved]
  - Venoocclusive disease [Recovered/Resolved]
  - Weight increased [Recovered/Resolved]
  - Oropharyngeal pain [Recovered/Resolved]
  - Thrombocytopenia [Recovered/Resolved]
  - Abdominal pain [Recovered/Resolved]
  - Aplastic anaemia [Recovered/Resolved]
  - Diarrhoea [Recovered/Resolved]
  - Transfusion [Recovered/Resolved]
